FAERS Safety Report 10315944 (Version 2)
Quarter: 2014Q3

REPORT INFORMATION
  Report Type: Other
  Country: US (occurrence: US)
  Receive Date: 20140719
  Receipt Date: 20140719
  Transmission Date: 20150326
  Serious: Yes (Hospitalization, Other)
  Sender: FDA-Public Use
  Company Number: US-GSKPPD-2014GSK003426

PATIENT
  Age: 71 Year
  Sex: Male

DRUGS (6)
  1. FUROSEMIDE. [Concomitant]
     Active Substance: FUROSEMIDE
  2. ENALAPRIL [Concomitant]
     Active Substance: ENALAPRIL
  3. AVANDIA [Suspect]
     Active Substance: ROSIGLITAZONE MALEATE
     Indication: DIABETES MELLITUS
     Dosage: DATES OF AVANDIA USE COULD NOT BE CONFIRMED IN RECORDS REVIEWED.
     Route: 048
  4. METOPROLOL [Concomitant]
     Active Substance: METOPROLOL
  5. AMIODARONE [Concomitant]
     Active Substance: AMIODARONE
  6. WARFARIN [Concomitant]
     Active Substance: WARFARIN
     Dosage: ALTERNATE WITH 2.5 MG

REACTIONS (1)
  - Cardiac failure congestive [Recovered/Resolved]

NARRATIVE: CASE EVENT DATE: 20050724
